FAERS Safety Report 25376814 (Version 1)
Quarter: 2025Q2

REPORT INFORMATION
  Report Type: Spontaneous
  Country: BR (occurrence: BR)
  Receive Date: 20250530
  Receipt Date: 20250530
  Transmission Date: 20250717
  Serious: Yes (Other)
  Sender: NOVO NORDISK
  Company Number: BR-NOVOPROD-1439534

PATIENT
  Age: 4 Year
  Sex: Female

DRUGS (1)
  1. OZEMPIC [Suspect]
     Active Substance: SEMAGLUTIDE
     Indication: Weight control
     Route: 064
     Dates: start: 2021

REACTIONS (2)
  - Type 1 diabetes mellitus [Not Recovered/Not Resolved]
  - Foetal exposure during pregnancy [Recovered/Resolved]
